FAERS Safety Report 8886914 (Version 2)
Quarter: 2012Q4

REPORT INFORMATION
  Report Type: 
  Country: US (occurrence: US)
  Receive Date: 20121105
  Receipt Date: 20121109
  Transmission Date: 20130627
  Serious: Yes (Death)
  Sender: FDA-Public Use
  Company Number: US-PFIZER INC-2012272209

PATIENT
  Age: 73 Year
  Sex: Female

DRUGS (1)
  1. REVATIO [Suspect]
     Indication: PRIMARY PULMONARY HYPERTENSION
     Dosage: UNK

REACTIONS (1)
  - Death [Fatal]
